FAERS Safety Report 4952656-2 (Version None)
Quarter: 2006Q1

REPORT INFORMATION
  Report Type: 
  Country: None (occurrence: None)
  Receive Date: 20060324
  Receipt Date: 20060314
  Transmission Date: 20060701
  Serious: Yes (Other)
  Sender: FDA-Public Use
  Company Number: GB-ABBOTT-06P-167-0328133-00

PATIENT
  Sex: Female

DRUGS (1)
  1. KLACID I.V. [Suspect]
     Indication: DRUG USE FOR UNKNOWN INDICATION
     Route: 040
     Dates: start: 20060203, end: 20060203

REACTIONS (4)
  - DRUG ADMINISTRATION ERROR [None]
  - FEELING HOT AND COLD [None]
  - PAIN [None]
  - SENSORY DISTURBANCE [None]
